FAERS Safety Report 14407312 (Version 1)
Quarter: 2018Q1

REPORT INFORMATION
  Report Type: Spontaneous
  Country: CZ (occurrence: CZ)
  Receive Date: 20180118
  Receipt Date: 20180118
  Transmission Date: 20180509
  Serious: Yes (Hospitalization)
  Sender: FDA-Public Use
  Company Number: CZ-ABBVIE-18P-217-2225288-00

PATIENT
  Age: 28 Year
  Sex: Male

DRUGS (2)
  1. LAMIVUDINE AND ZIDOVUDINE [Suspect]
     Active Substance: LAMIVUDINE\ZIDOVUDINE
     Indication: HIV INFECTION
     Route: 065
  2. LOPINAVIR/RITONAVIR [Suspect]
     Active Substance: LOPINAVIR\RITONAVIR
     Indication: HIV INFECTION
     Route: 065

REACTIONS (7)
  - Left ventricular dysfunction [Not Recovered/Not Resolved]
  - Acute coronary syndrome [Recovering/Resolving]
  - Chest pain [Recovering/Resolving]
  - Ventricular hypokinesia [Not Recovered/Not Resolved]
  - Ejection fraction decreased [Not Recovered/Not Resolved]
  - Coronary artery stenosis [Recovering/Resolving]
  - Troponin I increased [Recovering/Resolving]
